FAERS Safety Report 15241067 (Version 2)
Quarter: 2018Q3

REPORT INFORMATION
  Report Type: Report from Study
  Country: IE (occurrence: IE)
  Receive Date: 20180804
  Receipt Date: 20180911
  Transmission Date: 20181010
  Serious: Yes (Other)
  Sender: FDA-Public Use
  Company Number: IE-SA-2018SA209674

PATIENT
  Age: 34 Year
  Sex: Female

DRUGS (3)
  1. ALEMTUZUMAB [Suspect]
     Active Substance: ALEMTUZUMAB
     Indication: RELAPSING-REMITTING MULTIPLE SCLEROSIS
     Dosage: UNK UNK, UNK
     Route: 041
     Dates: start: 20180731
  2. PROGESTERONE. [Concomitant]
     Active Substance: PROGESTERONE
     Dosage: 1 MG, QD
     Route: 050
  3. ALEMTUZUMAB [Suspect]
     Active Substance: ALEMTUZUMAB
     Dosage: UNK UNK, UNK
     Route: 041

REACTIONS (8)
  - Emotional disorder [Not Recovered/Not Resolved]
  - Exposure during pregnancy [Unknown]
  - Hypothyroidism [Not Recovered/Not Resolved]
  - Rash [Recovering/Resolving]
  - Hernia [Recovered/Resolved]
  - Thyroid hormones increased [Unknown]
  - Crying [Not Recovered/Not Resolved]
  - Vertigo [Not Recovered/Not Resolved]

NARRATIVE: CASE EVENT DATE: 20180801
